FAERS Safety Report 5659492-2 (Version None)
Quarter: 2008Q1

REPORT INFORMATION
  Report Type: 
  Country: None (occurrence: None)
  Receive Date: 20080311
  Receipt Date: 20080304
  Transmission Date: 20080703
  Serious: Yes (Other)
  Sender: FDA-Public Use
  Company Number: PHRM2008FR00681

PATIENT
  Age: 65 Year
  Sex: Male
  Weight: 63 kg

DRUGS (2)
  1. TEGRETOL [Suspect]
     Indication: PARTIAL SEIZURES
     Dosage: 300 MG, BID
     Route: 048
     Dates: start: 20070201
  2. LIPANTHYL ^FOURNIER^ [Interacting]
     Indication: HYPERCHOLESTEROLAEMIA
     Dosage: 200 MG, QD
     Route: 048
     Dates: end: 20080201

REACTIONS (2)
  - DRUG INTERACTION [None]
  - HYPERCHOLESTEROLAEMIA [None]
